FAERS Safety Report 8455120-1 (Version None)
Quarter: 2012Q2

REPORT INFORMATION
  Report Type: 
  Country: None (occurrence: None)
  Receive Date: 20120614
  Receipt Date: 20120614
  Transmission Date: 20120825
  Serious: Yes (Other)
  Sender: FDA-Public Use
  Company Number: None

PATIENT
  Age: 40 Year
  Sex: Male
  Weight: 78.0187 kg

DRUGS (1)
  1. LEVOFLOXACIN [Suspect]
     Indication: NUCLEAR MAGNETIC RESONANCE IMAGING
     Dosage: 500MG, 1 PER DAY, PO
     Route: 048
     Dates: start: 20120607, end: 20120610

REACTIONS (3)
  - TENDON PAIN [None]
  - DRY MOUTH [None]
  - INSOMNIA [None]
